FAERS Safety Report 18533899 (Version 1)
Quarter: 2020Q4

REPORT INFORMATION
  Report Type: Report from Study
  Country: US (occurrence: US)
  Receive Date: 20201123
  Receipt Date: 20201123
  Transmission Date: 20210114
  Serious: Yes (Death, Hospitalization, Other)
  Sender: FDA-Public Use
  Company Number: US-BRISTOL-MYERS SQUIBB COMPANY-BMS-2020-099138

PATIENT
  Age: 63 Year
  Sex: Male
  Weight: 84.63 kg

DRUGS (2)
  1. NIVOLUMAB [Suspect]
     Active Substance: NIVOLUMAB
     Indication: NON-SMALL CELL LUNG CANCER
     Dosage: 260.4 MILLIGRAM, Q2WK
     Route: 042
     Dates: start: 20201106
  2. IPILIMUMAB [Suspect]
     Active Substance: IPILIMUMAB
     Indication: NON-SMALL CELL LUNG CANCER
     Dosage: 86.8 MILLIGRAM, Q6WK
     Route: 042
     Dates: start: 20201106

REACTIONS (2)
  - Facial paralysis [Unknown]
  - Death [Fatal]

NARRATIVE: CASE EVENT DATE: 20201116
